FAERS Safety Report 5564488-5 (Version None)
Quarter: 2007Q4

REPORT INFORMATION
  Report Type: 
  Country: None (occurrence: None)
  Receive Date: 20071218
  Receipt Date: 20071205
  Transmission Date: 20080405
  Serious: Yes (Hospitalization)
  Sender: FDA-Public Use
  Company Number: US-ELI_LILLY_AND_COMPANY-US200712001402

PATIENT
  Age: 17 Year
  Sex: Male

DRUGS (3)
  1. ZYPREXA [Suspect]
     Dosage: 10 MG, UNK
     Dates: start: 20070101
  2. ZYPREXA ZYDIS [Suspect]
     Dosage: 7.5 MG, UNK
     Dates: start: 20070101
  3. RISPERDAL [Concomitant]

REACTIONS (2)
  - DYSKINESIA [None]
  - PHYSICAL ASSAULT [None]
